FAERS Safety Report 6869160-7 (Version None)
Quarter: 2010Q3

REPORT INFORMATION
  Report Type: 
  Country: None (occurrence: None)
  Receive Date: 20100722
  Receipt Date: 20100722
  Transmission Date: 20110219
  Serious: Yes (Hospitalization)
  Sender: FDA-Public Use
  Company Number: None

PATIENT
  Age: 76 Year
  Sex: Male
  Weight: 98.2945 kg

DRUGS (10)
  1. BEXXAR [Suspect]
     Indication: MULTIPLE MYELOMA
     Dosage: 450 MG IV, X1
     Route: 042
     Dates: start: 20100427
  2. BEXXAR [Suspect]
     Indication: MULTIPLE MYELOMA
     Dosage: 450 MG IV, X1
     Route: 042
     Dates: start: 20100505
  3. BEXXAR [Suspect]
  4. ACYCLOVIR [Concomitant]
  5. CALCIUM CITRATE [Concomitant]
  6. CLOTRIMAZOLE [Concomitant]
  7. FILGASTRIM [Concomitant]
  8. LEVOTHYROXINE [Concomitant]
  9. LORAZEPAM [Concomitant]
  10. WARFARIN SODIUM [Concomitant]

REACTIONS (1)
  - CELLULITIS [None]
